FAERS Safety Report 10413838 (Version 6)
Quarter: 2015Q3

REPORT INFORMATION
  Report Type: Spontaneous
  Country: US (occurrence: US)
  Receive Date: 20140827
  Receipt Date: 20150713
  Transmission Date: 20151125
  Serious: Yes (Hospitalization, Other)
  Sender: FDA-Public Use
  Company Number: US-009507513-1408USA011504

PATIENT
  Sex: Female
  Weight: 82.99 kg

DRUGS (3)
  1. ALENDRONATE SODIUM. [Suspect]
     Active Substance: ALENDRONATE SODIUM
     Indication: OSTEOPOROSIS
     Dosage: 70 MG, QW
     Route: 048
     Dates: start: 20110628, end: 201109
  2. ALENDRONATE SODIUM. [Suspect]
     Active Substance: ALENDRONATE SODIUM
     Dosage: 70 MG, UNK
     Route: 048
     Dates: start: 20100812, end: 201206
  3. FOSAMAX [Suspect]
     Active Substance: ALENDRONATE SODIUM
     Indication: OSTEOPOROSIS
     Dosage: 70 MG, QW
     Route: 048
     Dates: start: 20081008, end: 201005

REACTIONS (17)
  - Femur fracture [Unknown]
  - Cardiomegaly [Unknown]
  - Night sweats [Unknown]
  - Arthralgia [Not Recovered/Not Resolved]
  - Type 2 diabetes mellitus [Unknown]
  - Heart valve incompetence [Unknown]
  - Blood cholesterol increased [Unknown]
  - Renal failure [Unknown]
  - Osteoarthritis [Unknown]
  - Vision blurred [Unknown]
  - Gastrooesophageal reflux disease [Unknown]
  - Anaemia of chronic disease [Unknown]
  - Peripheral swelling [Unknown]
  - Paraesthesia [Unknown]
  - Hypertension [Unknown]
  - Muscular weakness [Unknown]
  - Anaemia postoperative [Recovering/Resolving]

NARRATIVE: CASE EVENT DATE: 2008
